FAERS Safety Report 24572988 (Version 2)
Quarter: 2024Q4

REPORT INFORMATION
  Report Type: Spontaneous
  Country: US (occurrence: US)
  Receive Date: 20241101
  Receipt Date: 20241107
  Transmission Date: 20250115
  Serious: Yes (Disabling, Other)
  Sender: AMGEN
  Company Number: US-AMGEN-USASP2024213796

PATIENT
  Age: 49 Year
  Sex: Male
  Weight: 69 kg

DRUGS (33)
  1. TEPEZZA [Suspect]
     Active Substance: TEPROTUMUMAB-TRBW
     Indication: Endocrine ophthalmopathy
     Dosage: 10 MILLIGRAM/KILOGRAM, Q3WK, (FIRST INFUSION)
     Route: 040
     Dates: start: 20221116
  2. TEPEZZA [Suspect]
     Active Substance: TEPROTUMUMAB-TRBW
     Indication: Graves^ disease
     Dosage: 20 MILLIGRAM/KILOGRAM, Q3WK, (SECOND INFUSION)
     Route: 040
     Dates: start: 20221209
  3. TEPEZZA [Suspect]
     Active Substance: TEPROTUMUMAB-TRBW
     Dosage: 20 MILLIGRAM/KILOGRAM, Q3WK, (THIRD INFUSION)
     Route: 040
     Dates: start: 20221230
  4. TEPEZZA [Suspect]
     Active Substance: TEPROTUMUMAB-TRBW
     Dosage: 20 MILLIGRAM/KILOGRAM, Q3WK, (FOURTH INFUSION)
     Route: 040
     Dates: start: 20230119
  5. TEPEZZA [Suspect]
     Active Substance: TEPROTUMUMAB-TRBW
     Dosage: 20 MILLIGRAM/KILOGRAM, Q3WK, (FIFTH INFUSION)
     Route: 040
     Dates: start: 20230209
  6. TEPEZZA [Suspect]
     Active Substance: TEPROTUMUMAB-TRBW
     Dosage: 20 MILLIGRAM/KILOGRAM, Q3WK, (SIXTH INFUSION)
     Route: 040
     Dates: start: 20230302
  7. TEPEZZA [Suspect]
     Active Substance: TEPROTUMUMAB-TRBW
     Dosage: 20 MILLIGRAM/KILOGRAM, Q3WK, (SEVENTH INFUSION)
     Route: 040
     Dates: start: 20230322
  8. TEPEZZA [Suspect]
     Active Substance: TEPROTUMUMAB-TRBW
     Dosage: 20 MILLIGRAM/KILOGRAM, Q3WK, (EIGHT INFUSION)
     Route: 040
     Dates: start: 20230413
  9. CHANTIX [Concomitant]
     Active Substance: VARENICLINE TARTRATE
     Dosage: 1 MILLIGRAM, QD
     Route: 048
     Dates: start: 20211210
  10. CHANTIX [Concomitant]
     Active Substance: VARENICLINE TARTRATE
     Dosage: 1 MILLIGRAM, QD
     Route: 048
     Dates: start: 20211211
  11. CHANTIX [Concomitant]
     Active Substance: VARENICLINE TARTRATE
     Dosage: 1 MILLIGRAM, QD
     Route: 048
     Dates: start: 20220429
  12. DELTASONE [Concomitant]
     Active Substance: PREDNISONE
     Dosage: 20 MILLIGRAM, QD
     Route: 048
     Dates: start: 20211103, end: 20211220
  13. DELTASONE [Concomitant]
     Active Substance: PREDNISONE
     Dosage: 20 MILLIGRAM, QD
     Route: 048
     Dates: start: 20211220, end: 20220121
  14. DELTASONE [Concomitant]
     Active Substance: PREDNISONE
     Dosage: 20 MILLIGRAM, QD
     Route: 048
     Dates: start: 20220121
  15. PRINIVIL [Concomitant]
     Active Substance: LISINOPRIL
     Dosage: 20 MILLIGRAM, QD
     Route: 048
     Dates: start: 20211111, end: 20211216
  16. PRINIVIL [Concomitant]
     Active Substance: LISINOPRIL
     Dosage: 20 MILLIGRAM, QD
     Route: 048
     Dates: start: 20220509
  17. PRINIVIL [Concomitant]
     Active Substance: LISINOPRIL
     Dosage: 20 MILLIGRAM, QD
     Route: 048
     Dates: start: 20221108, end: 20230112
  18. PRINIVIL [Concomitant]
     Active Substance: LISINOPRIL
     Dosage: 20 MILLIGRAM, QD
     Route: 048
     Dates: start: 20230112, end: 20230313
  19. PRINIVIL [Concomitant]
     Active Substance: LISINOPRIL
     Dosage: 20 MILLIGRAM, QD
     Route: 048
     Dates: start: 20230523, end: 20240522
  20. SYNTHROID [Concomitant]
     Active Substance: LEVOTHYROXINE SODIUM
     Dosage: 150 MICROGRAM
     Route: 048
     Dates: start: 20211111, end: 20220103
  21. SYNTHROID [Concomitant]
     Active Substance: LEVOTHYROXINE SODIUM
     Dosage: 150 MICROGRAM
     Route: 048
     Dates: start: 20220207, end: 20230222
  22. SYNTHROID [Concomitant]
     Active Substance: LEVOTHYROXINE SODIUM
     Dosage: 150 MICROGRAM
     Route: 048
     Dates: start: 20230222
  23. KEFLEX [Concomitant]
     Active Substance: CEPHALEXIN
     Dosage: 500 MILLIGRAM, BID
     Route: 048
     Dates: start: 20220121, end: 20220126
  24. KEFLEX [Concomitant]
     Active Substance: CEPHALEXIN
     Dosage: 500 MILLIGRAM, BID
     Route: 048
     Dates: start: 20220126
  25. CELLCEPT [Concomitant]
     Active Substance: MYCOPHENOLATE MOFETIL
     Dosage: 500 MILLIGRAM, BID
     Route: 048
     Dates: start: 20220107, end: 20220218
  26. CELLCEPT [Concomitant]
     Active Substance: MYCOPHENOLATE MOFETIL
     Dosage: 500 MILLIGRAM, BID
     Route: 048
  27. XIIDRA [Concomitant]
     Active Substance: LIFITEGRAST
     Dosage: UNK, (2 DROPS INTO AFFECTED EYE(S))
     Route: 047
     Dates: start: 20220404
  28. SODIUM CHLORIDE [Concomitant]
     Active Substance: SODIUM CHLORIDE
     Dosage: UNK
     Route: 065
  29. NAPROSYN [Concomitant]
     Active Substance: NAPROXEN
     Dosage: 500 MILLIGRAM, BID
     Route: 048
     Dates: start: 20230222, end: 20230605
  30. MEDROL [Concomitant]
     Active Substance: METHYLPREDNISOLONE
     Dosage: UNK
     Route: 065
     Dates: start: 20230223, end: 20230605
  31. NIZORAL [Concomitant]
     Active Substance: KETOCONAZOLE
     Dosage: UNK UNK, BID
     Route: 061
     Dates: start: 20230510
  32. PROSCAR [Concomitant]
     Active Substance: FINASTERIDE
     Dosage: 5 MILLIGRAM, QD
     Route: 048
     Dates: start: 20230607
  33. FLOMAX [Concomitant]
     Active Substance: TAMSULOSIN HYDROCHLORIDE
     Dosage: 0.4 MILLIGRAM
     Route: 065
     Dates: start: 20230605, end: 20230607

REACTIONS (20)
  - Deafness permanent [Not Recovered/Not Resolved]
  - Endocrine ophthalmopathy [Unknown]
  - Graves^ disease [Unknown]
  - Deformity [Unknown]
  - Emotional distress [Unknown]
  - Anxiety [Unknown]
  - Impaired quality of life [Unknown]
  - Tinnitus [Not Recovered/Not Resolved]
  - Product use complaint [Unknown]
  - Alopecia [Unknown]
  - Nocturia [Unknown]
  - Nail disorder [Unknown]
  - Fatigue [Unknown]
  - Eosinophil count increased [Unknown]
  - Red blood cell count increased [Unknown]
  - Anion gap increased [Unknown]
  - Tenderness [Unknown]
  - Muscle spasms [Unknown]
  - Diarrhoea [Unknown]
  - Hyperglycaemia [Unknown]

NARRATIVE: CASE EVENT DATE: 20230502
